FAERS Safety Report 9272198 (Version 1)
Quarter: 2013Q2

REPORT INFORMATION
  Report Type: Spontaneous
  Country: US (occurrence: US)
  Receive Date: 20130506
  Receipt Date: 20130506
  Transmission Date: 20140414
  Serious: No
  Sender: FDA-Public Use
  Company Number: US-ASTRAZENECA-2013SE08535

PATIENT
  Age: 60 Year
  Sex: Female

DRUGS (2)
  1. PRILOSEC OTC [Suspect]
     Dosage: 1 PILL MOST DAYS; OCCASSIONALLY 2 PILLS ONCE A DAY
     Route: 048
     Dates: start: 20111227
  2. QVAR [Concomitant]

REACTIONS (3)
  - Eating disorder symptom [Recovered/Resolved]
  - Abdominal discomfort [Recovered/Resolved]
  - Intentional drug misuse [Unknown]
